FAERS Safety Report 7106826-8 (Version None)
Quarter: 2010Q4

REPORT INFORMATION
  Report Type: 
  Country: None (occurrence: None)
  Receive Date: 20101116
  Receipt Date: 20100827
  Transmission Date: 20110411
  Serious: No
  Sender: FDA-Public Use
  Company Number: US-ABBOTT-10P-163-0666472-00

PATIENT
  Sex: Male
  Weight: 93.07 kg

DRUGS (7)
  1. SIMCOR [Suspect]
     Indication: LDL/HDL RATIO
     Dosage: 500/20MG AT BEDTIME
  2. GABA [Suspect]
     Indication: SUPPLEMENTATION THERAPY
     Dosage: AT BEDTIME
  3. PROTEIN [Concomitant]
     Indication: MEDICAL DIET
  4. LEVOTHYROXINE [Concomitant]
     Indication: PRODUCT USED FOR UNKNOWN INDICATION
  5. TUMS [Concomitant]
     Indication: PRODUCT USED FOR UNKNOWN INDICATION
  6. TESTOSTERONE [Concomitant]
     Indication: PRODUCT USED FOR UNKNOWN INDICATION
  7. IRON [Concomitant]
     Indication: PRODUCT USED FOR UNKNOWN INDICATION

REACTIONS (3)
  - FEELING HOT [None]
  - FLUSHING [None]
  - GASTROOESOPHAGEAL REFLUX DISEASE [None]
